FAERS Safety Report 8254905-4 (Version None)
Quarter: 2012Q2

REPORT INFORMATION
  Report Type: 
  Country: None (occurrence: None)
  Receive Date: 20120403
  Receipt Date: 20120330
  Transmission Date: 20120825
  Serious: No
  Sender: FDA-Public Use
  Company Number: US-PFIZER INC-2012081898

PATIENT
  Sex: Female
  Weight: 60.771 kg

DRUGS (7)
  1. CRESTOR [Concomitant]
     Indication: BLOOD CHOLESTEROL INCREASED
     Dosage: 20 MG, DAILY
     Route: 048
  2. CHANTIX [Suspect]
     Indication: SMOKING CESSATION THERAPY
     Dosage: 0.5 MG, UNK
     Route: 048
     Dates: start: 20120308, end: 20120301
  3. CHANTIX [Suspect]
     Dosage: 1 MG, 2X/DAY
     Route: 048
     Dates: start: 20120301
  4. AMLODIPINE [Concomitant]
     Dosage: 5 MG, DAILY
  5. ALENDRONATE SODIUM [Concomitant]
     Dosage: 50MG, DAILY
  6. TRICOR [Concomitant]
     Dosage: 145 MG, DAILY
     Route: 048
  7. RANITIDINE [Concomitant]
     Indication: GASTROOESOPHAGEAL REFLUX DISEASE
     Dosage: 150 MG, DAILY

REACTIONS (2)
  - NAUSEA [None]
  - VOMITING [None]
